FAERS Safety Report 11616981 (Version 1)
Quarter: 2015Q4

REPORT INFORMATION
  Report Type: Spontaneous
  Country: US (occurrence: US)
  Receive Date: 20151009
  Receipt Date: 20151009
  Transmission Date: 20160304
  Serious: No
  Sender: FDA-Public Use
  Company Number: US-B.I. PHARMACEUTICALS,INC./RIDGEFIELD-2015-BI-53213BP

PATIENT
  Sex: Female

DRUGS (7)
  1. MYRBETRIQ [Concomitant]
     Active Substance: MIRABEGRON
     Indication: STRESS URINARY INCONTINENCE
     Route: 048
  2. LIPITOR [Concomitant]
     Active Substance: ATORVASTATIN CALCIUM
     Indication: PRODUCT USED FOR UNKNOWN INDICATION
     Route: 048
  3. ATORVASTATIN [Concomitant]
     Active Substance: ATORVASTATIN
     Indication: BLOOD CHOLESTEROL INCREASED
     Route: 048
  4. VITAMIN D3 [Concomitant]
     Active Substance: CHOLECALCIFEROL
     Indication: PRODUCT USED FOR UNKNOWN INDICATION
     Route: 065
  5. AGGRENOX [Suspect]
     Active Substance: ASPIRIN\DIPYRIDAMOLE
     Indication: CEREBROVASCULAR ACCIDENT PROPHYLAXIS
     Dosage: DOSE PER APPLICATION: 25 MG / 200 MG; DAILY DOSE: 50MG/400MG
     Route: 048
     Dates: start: 201502
  6. VITAMIN B12 [Concomitant]
     Active Substance: CYANOCOBALAMIN
     Indication: PRODUCT USED FOR UNKNOWN INDICATION
     Route: 065
  7. METFORMIN [Concomitant]
     Active Substance: METFORMIN HYDROCHLORIDE
     Indication: DIABETES MELLITUS
     Route: 048

REACTIONS (6)
  - Dysgeusia [Not Recovered/Not Resolved]
  - Dysgeusia [Recovered/Resolved]
  - Dizziness [Not Recovered/Not Resolved]
  - Hypertrophy of tongue papillae [Not Recovered/Not Resolved]
  - Head discomfort [Not Recovered/Not Resolved]
  - Orthostatic hypotension [Not Recovered/Not Resolved]
